FAERS Safety Report 5893209-1 (Version None)
Quarter: 2008Q3

REPORT INFORMATION
  Report Type: 
  Country: None (occurrence: None)
  Receive Date: 20080923
  Receipt Date: 20070802
  Transmission Date: 20090109
  Serious: No
  Sender: FDA-Public Use
  Company Number: US-ASTRAZENECA-2007UW19106

PATIENT
  Age: 61 Year
  Sex: Female
  Weight: 72.7 kg

DRUGS (6)
  1. SEROQUEL [Suspect]
     Indication: DEPRESSION
     Route: 048
     Dates: start: 20000101, end: 20060101
  2. SEROQUEL [Suspect]
     Indication: BIPOLAR DISORDER
     Route: 048
     Dates: start: 20000101, end: 20060101
  3. GEODON [Concomitant]
     Dates: start: 20060101
  4. PAXIL [Concomitant]
  5. DEPAKOTE [Concomitant]
  6. TRAZODONE HCL [Concomitant]

REACTIONS (3)
  - DIABETES MELLITUS [None]
  - MEMORY IMPAIRMENT [None]
  - WEIGHT INCREASED [None]
